FAERS Safety Report 13834434 (Version 1)
Quarter: 2017Q3

REPORT INFORMATION
  Report Type: Spontaneous
  Country: US (occurrence: US)
  Receive Date: 20170804
  Receipt Date: 20170804
  Transmission Date: 20171127
  Serious: No
  Sender: FDA-Public Use
  Company Number: US-PRINSTON PHARMACEUTICAL INC.-2017PRN00303

PATIENT
  Sex: Male
  Weight: 65.76 kg

DRUGS (11)
  1. ASPIRIN EC LOW DOSE 81 MG [Concomitant]
     Active Substance: ASPIRIN
     Dosage: 81 MG, 1X/DAY
  2. OXYCODONE/ACETAMINOPHEN TABLETS 10MG/325MG [Concomitant]
     Active Substance: ACETAMINOPHEN\OXYCODONE HYDROCHLORIDE
  3. LEVEMIR [Concomitant]
     Active Substance: INSULIN DETEMIR
  4. PRENATAL VITAMIN [Concomitant]
     Active Substance: VITAMINS
  5. PREDNISONE TABLETS 5MG [Concomitant]
     Active Substance: PREDNISONE
     Dosage: 5 MG, UNK
  6. CALCIUM [Concomitant]
     Active Substance: CALCIUM
  7. INSULIN [Concomitant]
     Active Substance: INSULIN NOS
  8. VITAMIN E [Concomitant]
     Active Substance: .ALPHA.-TOCOPHEROL
  9. RAPAMUNE [Concomitant]
     Active Substance: SIROLIMUS
  10. LISINOPRIL. [Suspect]
     Active Substance: LISINOPRIL
     Indication: HYPERTENSION
     Dosage: 2.5 MG, 1X/DAY
     Route: 048
  11. HUMALOG [Concomitant]
     Active Substance: INSULIN LISPRO

REACTIONS (1)
  - Blood pressure decreased [Unknown]
